FAERS Safety Report 16483038 (Version 5)
Quarter: 2019Q4

REPORT INFORMATION
  Report Type: Spontaneous
  Country: JP (occurrence: JP)
  Receive Date: 20190627
  Receipt Date: 20191128
  Transmission Date: 20200122
  Serious: Yes (Hospitalization, Disabling)
  Sender: FDA-Public Use
  Company Number: JP-ASTRAZENECA-2019SE40120

PATIENT
  Age: 79 Year
  Sex: Female
  Weight: 50 kg

DRUGS (8)
  1. TSUMURA HOCHUEKKITO [Concomitant]
     Indication: DECREASED APPETITE
     Route: 065
     Dates: end: 20190305
  2. LOXONIN [Concomitant]
     Active Substance: LOXOPROFEN SODIUM
     Indication: PARKINSONISM
     Route: 065
  3. TAGRISSO [Suspect]
     Active Substance: OSIMERTINIB
     Indication: NON-SMALL CELL LUNG CANCER STAGE IV
     Route: 048
     Dates: end: 20190326
  4. TAGRISSO [Suspect]
     Active Substance: OSIMERTINIB
     Indication: NON-SMALL CELL LUNG CANCER STAGE IV
     Route: 048
     Dates: start: 20180813
  5. SULPIRIDE [Concomitant]
     Active Substance: SULPIRIDE
     Indication: DECREASED APPETITE
     Route: 065
     Dates: start: 20181015, end: 20190107
  6. NAIXAN [Concomitant]
     Active Substance: NAPROXEN SODIUM
     Indication: PYREXIA
     Route: 065
     Dates: start: 20180108
  7. TAGRISSO [Suspect]
     Active Substance: OSIMERTINIB
     Indication: NON-SMALL CELL LUNG CANCER STAGE IV
     Route: 048
     Dates: start: 201812, end: 20190305
  8. IRESSA [Suspect]
     Active Substance: GEFITINIB
     Indication: NON-SMALL CELL LUNG CANCER STAGE IV
     Route: 048
     Dates: start: 20160316, end: 20170326

REACTIONS (8)
  - Hepatic function abnormal [Unknown]
  - Cardiac failure congestive [Recovering/Resolving]
  - Long QT syndrome [Recovering/Resolving]
  - Dyspnoea [Recovering/Resolving]
  - Decreased appetite [Recovered/Resolved]
  - Dehydration [Recovered/Resolved]
  - Product use issue [Unknown]
  - Stress cardiomyopathy [Recovered/Resolved]

NARRATIVE: CASE EVENT DATE: 20181015
